FAERS Safety Report 8046209-X (Version None)
Quarter: 2012Q1

REPORT INFORMATION
  Report Type: 
  Country: None (occurrence: None)
  Receive Date: 20120113
  Receipt Date: 20120109
  Transmission Date: 20120608
  Serious: Yes (Other)
  Sender: FDA-Public Use
  Company Number: BR-PFIZER INC-2012006684

PATIENT
  Age: 37 Year
  Sex: Female

DRUGS (1)
  1. LYRICA [Suspect]
     Indication: ARTHRALGIA
     Dosage: 75 MG, 1X/DAY
     Route: 048
     Dates: start: 20111101, end: 20110101

REACTIONS (7)
  - WEIGHT INCREASED [None]
  - SENSORY DISTURBANCE [None]
  - NAUSEA [None]
  - BLOOD PROLACTIN INCREASED [None]
  - BREAST ENLARGEMENT [None]
  - MENSTRUATION DELAYED [None]
  - PAIN [None]
